FAERS Safety Report 13608738 (Version 5)
Quarter: 2022Q1

REPORT INFORMATION
  Report Type: Spontaneous
  Country: US (occurrence: US)
  Receive Date: 20170602
  Receipt Date: 20220114
  Transmission Date: 20220423
  Serious: Yes (Other)
  Sender: FDA-Public Use
  Company Number: US-PFIZER INC-2017241680

PATIENT
  Age: 54 Year
  Sex: Female

DRUGS (1)
  1. XELJANZ XR [Suspect]
     Active Substance: TOFACITINIB CITRATE
     Indication: Rheumatoid arthritis
     Dosage: 11 MG, UNK

REACTIONS (4)
  - Nephrolithiasis [Unknown]
  - Cellulitis [Unknown]
  - Infection [Unknown]
  - Toothache [Unknown]
